FAERS Safety Report 17657415 (Version 3)
Quarter: 2020Q3

REPORT INFORMATION
  Report Type: Report from Study
  Country: DE (occurrence: DE)
  Receive Date: 20200410
  Receipt Date: 20200427
  Transmission Date: 20201104
  Serious: Yes (Hospitalization)
  Sender: FDA-Public Use
  Company Number: DE-CELGENEUS-DEU-20180803241

PATIENT
  Age: 53 Year
  Sex: Female
  Weight: 78.6 kg

DRUGS (7)
  1. PANTOPRAZOL [Concomitant]
     Active Substance: PANTOPRAZOLE SODIUM
     Indication: GASTROOESOPHAGEAL REFLUX DISEASE
     Route: 048
     Dates: start: 20171027
  2. LEVODOPA [Concomitant]
     Active Substance: LEVODOPA
     Indication: RESTLESS LEGS SYNDROME
     Dosage: 100/25 MG
     Route: 048
     Dates: start: 2016
  3. L?THYROXIN [Concomitant]
     Active Substance: LEVOTHYROXINE SODIUM
     Indication: THYROID MASS
     Dosage: 50 MICROGRAM
     Route: 048
     Dates: start: 1995
  4. PANTOPRAZOL [Concomitant]
     Active Substance: PANTOPRAZOLE SODIUM
     Indication: ABDOMINAL PAIN UPPER
  5. OZANIMOD. [Suspect]
     Active Substance: OZANIMOD
     Indication: COLITIS ULCERATIVE
     Dosage: 1 MILLIGRAM
     Route: 048
     Dates: start: 20180621, end: 20180730
  6. AZITHROMYCIN ANHYDROUS. [Concomitant]
     Active Substance: AZITHROMYCIN ANHYDROUS
     Indication: BRONCHITIS
     Dosage: 500 MILLIGRAM
     Route: 048
     Dates: start: 20180921, end: 20180923
  7. SOLEDUM [Concomitant]
     Active Substance: EUCALYPTOL
     Indication: BRONCHITIS
     Dosage: 300 MILLIGRAM
     Route: 048
     Dates: start: 20180919, end: 20180923

REACTIONS (1)
  - Neuralgia [Recovering/Resolving]

NARRATIVE: CASE EVENT DATE: 20180809
